FAERS Safety Report 8311148-3 (Version None)
Quarter: 2012Q2

REPORT INFORMATION
  Report Type: 
  Country: None (occurrence: None)
  Receive Date: 20120425
  Receipt Date: 20110720
  Transmission Date: 20120825
  Serious: No
  Sender: FDA-Public Use
  Company Number: US-MYLANLABS-2011S1013998

PATIENT
  Age: 40 Year
  Sex: Male
  Weight: 111.13 kg

DRUGS (7)
  1. ZITHROMAX [Concomitant]
  2. LORAZEPAM [Suspect]
     Route: 048
     Dates: start: 20110501
  3. POTASSIUM CHLORIDE [Concomitant]
     Dates: start: 20050101
  4. LISINOPRIL AND HYDROCHLOROTHIAZIDE [Concomitant]
     Indication: BLOOD PRESSURE INCREASED
     Dates: start: 20050101
  5. LORAZEPAM [Suspect]
     Indication: ANXIETY
     Route: 048
     Dates: start: 20100701, end: 20110301
  6. TUSSIN DM [Concomitant]
  7. LORAZEPAM [Suspect]
     Route: 048
     Dates: start: 20110301, end: 20110501

REACTIONS (4)
  - FATIGUE [None]
  - WEIGHT INCREASED [None]
  - SLEEP APNOEA SYNDROME [None]
  - MYALGIA [None]
